FAERS Safety Report 7715858-8 (Version None)
Quarter: 2011Q3

REPORT INFORMATION
  Report Type: 
  Country: None (occurrence: None)
  Receive Date: 20110829
  Receipt Date: 20110829
  Transmission Date: 20111222
  Serious: Yes (Hospitalization)
  Sender: FDA-Public Use
  Company Number: None

PATIENT
  Age: 33 Year
  Sex: Female
  Weight: 65.77 kg

DRUGS (1)
  1. HYDROCODONE BITARTRATE AND ACETAMINOPHEN [Suspect]
     Indication: ARTHRALGIA
     Dosage: 1 TABLET BY MOUTH EVERY 6 HOUR
     Route: 048
     Dates: start: 20110809, end: 20110819

REACTIONS (3)
  - ABDOMINAL PAIN [None]
  - PALPITATIONS [None]
  - DIZZINESS [None]
